FAERS Safety Report 20158501 (Version 3)
Quarter: 2022Q1

REPORT INFORMATION
  Report Type: Report from Study
  Country: SK (occurrence: SK)
  Receive Date: 20211207
  Receipt Date: 20220315
  Transmission Date: 20220423
  Serious: Yes (Hospitalization)
  Sender: FDA-Public Use
  Company Number: SK-JNJFOC-20211209614

PATIENT
  Age: 74 Year
  Sex: Male

DRUGS (11)
  1. IMBRUVICA [Suspect]
     Active Substance: IBRUTINIB
     Indication: Chronic lymphocytic leukaemia
     Dosage: 3 TBL DAILY
     Route: 048
     Dates: start: 202003, end: 20211122
  2. IMBRUVICA [Suspect]
     Active Substance: IBRUTINIB
     Dosage: 1 TBL DAILY
     Route: 048
     Dates: start: 202102, end: 2021
  3. IMBRUVICA [Suspect]
     Active Substance: IBRUTINIB
     Dosage: IBRUTINIB WAS INTERRUPTED FROM 22/11/2021
     Route: 048
     Dates: start: 20211121, end: 20211122
  4. IMBRUVICA [Suspect]
     Active Substance: IBRUTINIB
     Dosage: RECHALLENGE 1 TBL DAILY
     Route: 048
     Dates: start: 202112
  5. MAGNEROT [MAGNESIUM GLUCONATE] [Concomitant]
     Indication: Product used for unknown indication
  6. ALLOPURINOL [Concomitant]
     Active Substance: ALLOPURINOL
     Indication: Product used for unknown indication
  7. ELIQUIS [Concomitant]
     Active Substance: APIXABAN
     Indication: Product used for unknown indication
  8. METOPROLOL TARTRATE [Concomitant]
     Active Substance: METOPROLOL TARTRATE
     Indication: Product used for unknown indication
  9. STADACAND [Concomitant]
     Indication: Product used for unknown indication
  10. .ALPHA.-LIPOIC ACID [Concomitant]
     Active Substance: .ALPHA.-LIPOIC ACID
     Indication: Product used for unknown indication
  11. ENELBIN-VENEN [Concomitant]
     Indication: Product used for unknown indication

REACTIONS (1)
  - Lung disorder [Recovering/Resolving]

NARRATIVE: CASE EVENT DATE: 20211122
